FAERS Safety Report 22069188 (Version 1)
Quarter: 2023Q1

REPORT INFORMATION
  Report Type: Spontaneous
  Country: US (occurrence: US)
  Receive Date: 20230307
  Receipt Date: 20230307
  Transmission Date: 20230417
  Serious: Yes (Other)
  Sender: FDA-Public Use
  Company Number: US-PFIZER INC-PV202300040101

PATIENT
  Age: 76 Year
  Sex: Female

DRUGS (1)
  1. IBRANCE [Suspect]
     Active Substance: PALBOCICLIB
     Dosage: 125 MG

REACTIONS (6)
  - Cardiac failure congestive [Unknown]
  - COVID-19 [Unknown]
  - Fatigue [Unknown]
  - Weight decreased [Unknown]
  - Urticaria [Recovered/Resolved]
  - Depressed mood [Unknown]
